FAERS Safety Report 5011878-5 (Version None)
Quarter: 2006Q2

REPORT INFORMATION
  Report Type: 
  Country: None (occurrence: None)
  Receive Date: 20060524
  Receipt Date: 20060524
  Transmission Date: 20061013
  Serious: Yes (Hospitalization)
  Sender: FDA-Public Use
  Company Number: None

PATIENT
  Age: 48 Year
  Sex: Male
  Weight: 121.4 kg

DRUGS (2)
  1. SIMVASTATIN [Suspect]
     Indication: HYPERLIPIDAEMIA
     Dosage: 40 MG  DAILY  PO
     Route: 048
     Dates: start: 20051109, end: 20060201
  2. LAMOTRIGINE [Suspect]
     Indication: BIPOLAR DISORDER
     Dosage: 25 MG  DAILY   PO
     Route: 048
     Dates: start: 20060131

REACTIONS (5)
  - BLOOD CREATINE PHOSPHOKINASE INCREASED [None]
  - CERVICAL CORD COMPRESSION [None]
  - DEPRESSION SUICIDAL [None]
  - HEMIPARESIS [None]
  - HYPOAESTHESIA [None]
